FAERS Safety Report 9771426 (Version 1)
Quarter: 2013Q4

REPORT INFORMATION
  Report Type: Spontaneous
  Country: AT (occurrence: AT)
  Receive Date: 20131219
  Receipt Date: 20131219
  Transmission Date: 20140711
  Serious: Yes (Death, Other)
  Sender: FDA-Public Use
  Company Number: AT-AMGEN-AUTSP2013088775

PATIENT
  Age: 60 Year
  Sex: Female

DRUGS (3)
  1. CINACALCET HCL [Suspect]
     Indication: PRODUCT USED FOR UNKNOWN INDICATION
     Dosage: 30 MG, QD
     Route: 048
  2. SODIUM THIOSULFATE [Concomitant]
     Dosage: 40 G, QD
     Route: 065
  3. CALCIUM [Concomitant]

REACTIONS (7)
  - Cardiac death [Fatal]
  - Skin necrosis [Recovering/Resolving]
  - Localised infection [Recovering/Resolving]
  - Pain [Recovering/Resolving]
  - Lividity [Recovering/Resolving]
  - Skin induration [Recovering/Resolving]
  - Pain of skin [Recovering/Resolving]
